FAERS Safety Report 12286563 (Version 2)
Quarter: 2016Q4

REPORT INFORMATION
  Report Type: Spontaneous
  Country: JP (occurrence: JP)
  Receive Date: 20160420
  Receipt Date: 20161021
  Transmission Date: 20170207
  Serious: Yes (Hospitalization)
  Sender: FDA-Public Use
  Company Number: JP-009507513-1604JPN000322

PATIENT
  Age: 66 Year
  Sex: Male
  Weight: 51 kg

DRUGS (6)
  1. DEPAKENE [Concomitant]
     Active Substance: VALPROIC ACID
     Dosage: 200 MG, TID, FGR
     Route: 048
     Dates: start: 20160304, end: 20160310
  2. RIVOTRIL [Suspect]
     Active Substance: CLONAZEPAM
     Indication: IRRITABILITY
     Dosage: 0.5 MG, QD, POR
     Route: 048
     Dates: start: 20160311, end: 20160324
  3. BELSOMRA [Suspect]
     Active Substance: SUVOREXANT
     Indication: INSOMNIA
     Dosage: 15 MG, QD
     Route: 048
     Dates: start: 20160208
  4. DEPAKENE [Concomitant]
     Active Substance: VALPROIC ACID
     Indication: IRRITABILITY
     Dosage: 100 MG, QID, FGR
     Route: 048
     Dates: start: 20160222, end: 20160303
  5. LINTON (HALOPERIDOL) [Concomitant]
     Indication: HALLUCINATION
     Dosage: 0.75 MG, QD, POR
     Route: 048
     Dates: start: 20160205, end: 20160406
  6. DEPAKENE [Concomitant]
     Active Substance: VALPROIC ACID
     Dosage: 200 MG, QID, FGR
     Route: 048
     Dates: start: 20160311, end: 20160318

REACTIONS (1)
  - Urinary retention [Recovered/Resolved]

NARRATIVE: CASE EVENT DATE: 20160311
